FAERS Safety Report 16919786 (Version 1)
Quarter: 2019Q4

REPORT INFORMATION
  Report Type: Spontaneous
  Country: US (occurrence: US)
  Receive Date: 20191015
  Receipt Date: 20191015
  Transmission Date: 20200122
  Serious: Yes (Hospitalization, Other)
  Sender: FDA-Public Use
  Company Number: US-GENERICUS, INC.-2019GNR00030

PATIENT
  Sex: Female
  Weight: 34.92 kg

DRUGS (1)
  1. TOBRAMYCIN. [Suspect]
     Active Substance: TOBRAMYCIN
     Indication: CYSTIC FIBROSIS
     Dosage: 300 MG, 2X/DAY, EVERY 12 HOURS, 28 DAYS ON THEN 28 DAYS OFF
     Dates: start: 20190516

REACTIONS (2)
  - Hospitalisation [Recovered/Resolved]
  - Forced expiratory volume decreased [Unknown]

NARRATIVE: CASE EVENT DATE: 2019
